FAERS Safety Report 7244816-5 (Version None)
Quarter: 2011Q1

REPORT INFORMATION
  Report Type: 
  Country: None (occurrence: None)
  Receive Date: 20110126
  Receipt Date: 20110111
  Transmission Date: 20110831
  Serious: Yes (Hospitalization)
  Sender: FDA-Public Use
  Company Number: DE-PFIZER INC-2009288828

PATIENT
  Age: 48 Year
  Sex: Male

DRUGS (7)
  1. DOXEPIN HYDROCHLORIDE [Suspect]
     Dosage: 50 MG, 1X/DAY
     Route: 048
  2. TAVOR [Suspect]
     Dosage: 1 MG, 1X/DAY
     Route: 048
  3. CHLORPROTHIXENE [Suspect]
     Dosage: 450 MG, 1X/DAY
     Route: 048
  4. CIATYL [Suspect]
     Dosage: 50 MG, 1X/DAY
     Route: 048
  5. RISPERDAL [Suspect]
     Dosage: 37.5 MG, UNK
     Route: 030
     Dates: end: 20091014
  6. AKINETON [Suspect]
     Dosage: UNK
     Route: 048
  7. DOMINAL FORTE [Suspect]
     Dosage: 80 MG, 1X/DAY
     Route: 048

REACTIONS (4)
  - DYSPNOEA [None]
  - COMA [None]
  - CONVULSION [None]
  - BLOOD SODIUM DECREASED [None]
